FAERS Safety Report 11971871 (Version 1)
Quarter: 2016Q1

REPORT INFORMATION
  Report Type: Spontaneous
  Country: CA (occurrence: CA)
  Receive Date: 20160128
  Receipt Date: 20160128
  Transmission Date: 20160526
  Serious: Yes (Other)
  Sender: FDA-Public Use
  Company Number: CA-BAYER-2016-015508

PATIENT
  Age: 44 Year
  Sex: Female

DRUGS (1)
  1. MIRENA [Suspect]
     Active Substance: LEVONORGESTREL
     Indication: DYSMENORRHOEA
     Dosage: 20 MCG/24HR, CONT
     Route: 015
     Dates: start: 2015, end: 20160125

REACTIONS (8)
  - Suicidal ideation [None]
  - Breast tenderness [None]
  - Mood altered [None]
  - Weight increased [None]
  - Genital haemorrhage [Not Recovered/Not Resolved]
  - Insomnia [None]
  - Off label use [None]
  - Depression [None]

NARRATIVE: CASE EVENT DATE: 2015
